FAERS Safety Report 4581434-1 (Version None)
Quarter: 2005Q1

REPORT INFORMATION
  Report Type: 
  Country: None (occurrence: None)
  Receive Date: 20050127
  Receipt Date: 20040909
  Transmission Date: 20050727
  Serious: No
  Sender: FDA-Public Use
  Company Number: USA040977700

PATIENT
  Sex: Male
  Weight: 37 kg

DRUGS (2)
  1. STRATTERA [Suspect]
     Dosage: 80 MG DAY
  2. ADDERALL 10 [Concomitant]

REACTIONS (2)
  - ACCIDENTAL OVERDOSE [None]
  - MEDICATION ERROR [None]
